FAERS Safety Report 11300156 (Version 1)
Quarter: 2015Q3

REPORT INFORMATION
  Report Type: Spontaneous
  Country: US (occurrence: US)
  Receive Date: 20150722
  Receipt Date: 20150722
  Transmission Date: 20151125
  Serious: No
  Sender: FDA-Public Use
  Company Number: US-ELI_LILLY_AND_COMPANY-US201306007314

PATIENT
  Age: 72 Year
  Sex: Female

DRUGS (1)
  1. EFFIENT [Suspect]
     Active Substance: PRASUGREL HYDROCHLORIDE
     Indication: STENT PLACEMENT
     Dosage: 10 MG, QD
     Dates: start: 20121023

REACTIONS (18)
  - Migraine [Unknown]
  - Oral mucosal erythema [Unknown]
  - Pain in extremity [Unknown]
  - Gastrooesophageal reflux disease [Unknown]
  - Amnesia [Unknown]
  - Haematoma [Recovered/Resolved]
  - Contusion [Unknown]
  - Epistaxis [Recovered/Resolved]
  - Fall [Unknown]
  - Fatigue [Unknown]
  - Pain [Unknown]
  - Gastrointestinal pain [Unknown]
  - Depressed level of consciousness [Unknown]
  - Asthenia [Unknown]
  - Abdominal pain [Unknown]
  - Abdominal distension [Unknown]
  - Somnolence [Unknown]
  - Gingival swelling [Unknown]

NARRATIVE: CASE EVENT DATE: 20121225
